FAERS Safety Report 11678199 (Version 1)
Quarter: 2015Q4

REPORT INFORMATION
  Report Type: Spontaneous
  Country: US (occurrence: US)
  Receive Date: 20151028
  Receipt Date: 20151028
  Transmission Date: 20160304
  Serious: Yes (Other)
  Sender: FDA-Public Use
  Company Number: US-BAYER-2015-449448

PATIENT
  Age: 16 Year
  Sex: Male
  Weight: 81.63 kg

DRUGS (1)
  1. AFRIN ORIGINAL [Suspect]
     Active Substance: OXYMETAZOLINE HYDROCHLORIDE
     Indication: NASAL CONGESTION
     Dosage: 1 DF, PRN
     Route: 055
     Dates: start: 1995

REACTIONS (2)
  - Product use issue [None]
  - Drug dependence [None]

NARRATIVE: CASE EVENT DATE: 1995
